FAERS Safety Report 10206779 (Version 1)
Quarter: 2014Q2

REPORT INFORMATION
  Report Type: Spontaneous
  Country: ES (occurrence: ES)
  Receive Date: 20140530
  Receipt Date: 20140530
  Transmission Date: 20141212
  Serious: Yes (Hospitalization)
  Sender: FDA-Public Use
  Company Number: ES-PFIZER INC-2014146964

PATIENT
  Age: 83 Year
  Sex: Female

DRUGS (5)
  1. LYRICA [Suspect]
     Indication: BACK PAIN
     Dosage: 50 MG, 1X/DAY
     Route: 048
     Dates: start: 20140408, end: 20140415
  2. TOVIAZ [Interacting]
     Indication: URINARY INCONTINENCE
     Dosage: 4 MG, 1X/DAY
     Route: 048
     Dates: start: 20090605, end: 20140415
  3. ZALDIAR [Interacting]
     Indication: BACK PAIN
     Dosage: 1 DF, 37.5 MG/325 MG,  3X/DAY
     Route: 048
     Dates: start: 20140408, end: 20140415
  4. ENALAPRIL [Concomitant]
     Indication: HYPERTENSION
     Dosage: 20 MG, 2X/DAY
     Route: 048
     Dates: start: 20111004
  5. LEXATIN [Concomitant]
     Indication: ANXIETY
     Dosage: 1.5 MG, 1X/DAY
     Route: 048
     Dates: start: 20120517, end: 20140415

REACTIONS (2)
  - Drug interaction [Recovering/Resolving]
  - Serotonin syndrome [Recovering/Resolving]
